FAERS Safety Report 9443308 (Version 1)
Quarter: 2013Q3

REPORT INFORMATION
  Report Type: Spontaneous
  Country: US (occurrence: US)
  Receive Date: 20130806
  Receipt Date: 20130806
  Transmission Date: 20140515
  Serious: No
  Sender: FDA-Public Use
  Company Number: US-009507513-1308USA000869

PATIENT
  Age: 20 Year
  Sex: Female
  Weight: 75.74 kg

DRUGS (3)
  1. IMPLANON [Suspect]
     Indication: CONTRACEPTION
     Dosage: UNK
     Route: 059
     Dates: start: 20120328, end: 20130725
  2. CYMBALTA [Concomitant]
  3. CLONIDINE [Concomitant]

REACTIONS (2)
  - Feeling abnormal [Recovered/Resolved]
  - Mood swings [Recovered/Resolved]
